FAERS Safety Report 11785338 (Version 4)
Quarter: 2016Q1

REPORT INFORMATION
  Report Type: Spontaneous
  Country: PL (occurrence: PL)
  Receive Date: 20151130
  Receipt Date: 20160309
  Transmission Date: 20160525
  Serious: Yes (Hospitalization)
  Sender: FDA-Public Use
  Company Number: PHHY2015PL156204

PATIENT
  Sex: Male

DRUGS (1)
  1. GILENYA [Suspect]
     Active Substance: FINGOLIMOD HYDROCHLORIDE
     Indication: PRODUCT USED FOR UNKNOWN INDICATION
     Dosage: UNK
     Route: 048

REACTIONS (6)
  - Seizure [Unknown]
  - Partial seizures with secondary generalisation [Unknown]
  - Epilepsy [Not Recovered/Not Resolved]
  - Tonic convulsion [Unknown]
  - Muscle rigidity [Unknown]
  - Loss of consciousness [Unknown]
